FAERS Safety Report 6840786-X (Version None)
Quarter: 2010Q3

REPORT INFORMATION
  Report Type: 
  Country: None (occurrence: None)
  Receive Date: 20100714
  Receipt Date: 20060809
  Transmission Date: 20110219
  Serious: No
  Sender: FDA-Public Use
  Company Number: US-PFIZER INC-2006098744

PATIENT
  Sex: Female
  Weight: 68.04 kg

DRUGS (12)
  1. CHANTIX [Suspect]
     Indication: SMOKING CESSATION THERAPY
     Route: 065
     Dates: start: 20060701, end: 20060101
  2. ENABLEX [Concomitant]
     Route: 065
  3. PLAVIX [Concomitant]
     Route: 065
  4. MOBIC [Concomitant]
     Route: 065
  5. LORTAB [Concomitant]
     Route: 065
  6. LIPITOR [Concomitant]
     Route: 065
  7. ACETYLSALICYLIC ACID [Concomitant]
     Route: 065
  8. LEXAPRO [Concomitant]
     Route: 065
  9. VITAMINS [Concomitant]
     Route: 065
  10. XANAX [Concomitant]
     Route: 065
  11. VITAMIN B-12 [Concomitant]
     Route: 065
  12. CALCIUM WITH VITAMIN D [Concomitant]
     Route: 065

REACTIONS (4)
  - CONSTIPATION [None]
  - EATING DISORDER [None]
  - TOBACCO USER [None]
  - VOMITING [None]
